FAERS Safety Report 8799124 (Version 2)
Quarter: 2013Q1

REPORT INFORMATION
  Report Type: Spontaneous
  Country: US (occurrence: US)
  Receive Date: 20120920
  Receipt Date: 20130320
  Transmission Date: 20140127
  Serious: No
  Sender: FDA-Public Use
  Company Number: US-ASTRAZENECA-2011SE79060

PATIENT
  Age: 64 Year
  Sex: Male
  Weight: 129.3 kg

DRUGS (11)
  1. LISINOPRIL [Suspect]
     Route: 048
  2. LISINOPRIL [Suspect]
     Route: 048
  3. SYMBICORT PMDI [Suspect]
     Dosage: 160 MCG, TWO PUFFS TWICE DAILY
     Route: 055
  4. ALBUTEROL [Concomitant]
     Dosage: CFC FREE, 90 MCG, 2 PUFFS, FOUR TIMES A DAY
     Route: 055
  5. ALBUTEROL [Concomitant]
     Dosage: 90 MCG, UNKNOWN FREQUENCY
     Route: 065
  6. FLOMAX [Concomitant]
  7. CHANTIX [Concomitant]
  8. LASIX [Concomitant]
  9. FLOVENT [Concomitant]
  10. OXYGEN [Concomitant]
     Dosage: 3 LT, UNKNOWN FREQUENCY
     Route: 065
  11. SPIRIVA [Concomitant]

REACTIONS (12)
  - Hypoxia [Unknown]
  - Chronic obstructive pulmonary disease [Unknown]
  - Bullous lung disease [Unknown]
  - Polycythaemia [Recovering/Resolving]
  - Benign prostatic hyperplasia [Unknown]
  - Coronary artery disease [Unknown]
  - Hypertension [Unknown]
  - Increased upper airway secretion [Recovering/Resolving]
  - Urinary retention [Unknown]
  - Dyspnoea [Unknown]
  - Nasopharyngitis [Recovering/Resolving]
  - Cough [Unknown]
